FAERS Safety Report 4870594-0 (Version None)
Quarter: 2006Q1

REPORT INFORMATION
  Report Type: 
  Country: None (occurrence: None)
  Receive Date: 20060103
  Receipt Date: 20051209
  Transmission Date: 20060701
  Serious: Yes (Death)
  Sender: FDA-Public Use
  Company Number: JP-NOVOPROD-249203

PATIENT
  Age: 17 Year
  Sex: Male

DRUGS (4)
  1. NOVOSEVEN [Suspect]
     Indication: HAEMORRHAGE
     Dosage: 12 MG, SINGLE
     Route: 042
     Dates: start: 20050105, end: 20050105
  2. MANNITOL [Concomitant]
     Dosage: 84 IU, UNK
     Dates: start: 20050105
  3. FRESH FROZEN PLASMA [Concomitant]
     Dosage: 76 IU, UNK
     Dates: start: 20050501
  4. PLATELETS [Concomitant]
     Dosage: 50 IU, UNK
     Dates: start: 20050105

REACTIONS (1)
  - ENCEPHALOPATHY [None]
